FAERS Safety Report 7788771-8 (Version None)
Quarter: 2011Q3

REPORT INFORMATION
  Report Type: 
  Country: None (occurrence: None)
  Receive Date: 20110928
  Receipt Date: 20110923
  Transmission Date: 20111222
  Serious: Yes (Other)
  Sender: FDA-Public Use
  Company Number: SP04566

PATIENT
  Age: 65 Year
  Sex: Male

DRUGS (11)
  1. COMBIVENT [Concomitant]
  2. ASPIRIN [Concomitant]
  3. PROGRAF [Concomitant]
  4. BACTRIM [Concomitant]
  5. SINGULAIR [Concomitant]
  6. NEXIUM [Concomitant]
  7. XIFAXAN [Suspect]
     Indication: ENCEPHALOPATHY
     Dosage: 1100 MG (550 MG, 2 IN 1 D), ORAL
     Route: 048
     Dates: start: 20110901
  8. NIFEDIPINE [Concomitant]
  9. LACTULOSE [Concomitant]
  10. LORAZEPAM [Concomitant]
  11. ACTIGALL [Concomitant]

REACTIONS (4)
  - SUICIDAL IDEATION [None]
  - DISEASE RECURRENCE [None]
  - ABNORMAL DREAMS [None]
  - MIDDLE INSOMNIA [None]
